FAERS Safety Report 8116985-6 (Version None)
Quarter: 2012Q1

REPORT INFORMATION
  Report Type: 
  Country: None (occurrence: None)
  Receive Date: 20120206
  Receipt Date: 20120131
  Transmission Date: 20120608
  Serious: Yes (Disabling, Other)
  Sender: FDA-Public Use
  Company Number: PHEH2011US02051

PATIENT
  Sex: Male

DRUGS (4)
  1. GILENYA [Suspect]
     Indication: RELAPSING-REMITTING MULTIPLE SCLEROSIS
     Dosage: 0.5 MG, QD
     Route: 048
     Dates: start: 20110520, end: 20110818
  2. BACLOFEN [Concomitant]
     Indication: MUSCLE SPASTICITY
     Dosage: 10 MG, BID
  3. TEMAZEPAM [Concomitant]
     Indication: INSOMNIA
     Dosage: 30 MG, QHS
  4. CLONAZEPAM [Concomitant]
     Indication: MUSCLE SPASTICITY
     Dosage: 0.5 MG, QHS

REACTIONS (4)
  - ABDOMINAL PAIN UPPER [None]
  - SYNCOPE [None]
  - LOSS OF CONSCIOUSNESS [None]
  - NAUSEA [None]
